FAERS Safety Report 16365326 (Version 2)
Quarter: 2019Q3

REPORT INFORMATION
  Report Type: Spontaneous
  Country: DE (occurrence: DE)
  Receive Date: 20190529
  Receipt Date: 20190823
  Transmission Date: 20191004
  Serious: Yes (Other)
  Sender: FDA-Public Use
  Company Number: DE-SUN PHARMACEUTICAL INDUSTRIES LTD-2018RR-191819

PATIENT
  Age: 72 Year
  Sex: Male

DRUGS (7)
  1. STROPHANTIN [Concomitant]
     Indication: PROPHYLAXIS
     Dosage: UNK
     Route: 065
     Dates: start: 2017, end: 2018
  2. KLACID-MR [Suspect]
     Active Substance: CLARITHROMYCIN
     Indication: HELICOBACTER INFECTION
     Dosage: 500 MG, UNK
     Route: 065
  3. MOTILIUM [Suspect]
     Active Substance: DOMPERIDONE
     Indication: PRODUCT USED FOR UNKNOWN INDICATION
     Dosage: 10 MILLIGRAM
     Route: 065
  4. TASIGNA [Interacting]
     Active Substance: NILOTINIB
     Dosage: 600 MILLIGRAM, QD,  (2X200 MG IN THE MORNING, 200 MG IN THE EVENING)
     Route: 048
     Dates: start: 201402
  5. TASIGNA [Interacting]
     Active Substance: NILOTINIB
     Indication: CHRONIC MYELOID LEUKAEMIA
     Dosage: 400 MILLIGRAM, QD, (200-0-200 MG)
     Route: 048
     Dates: start: 201605
  6. PANTOPRAZOLE [Suspect]
     Active Substance: PANTOPRAZOLE
     Indication: PRODUCT USED FOR UNKNOWN INDICATION
     Dosage: UNK
     Route: 065
  7. TURMERIC [Suspect]
     Active Substance: HERBALS\TURMERIC
     Indication: PRODUCT USED FOR UNKNOWN INDICATION
     Dosage: 1 TSP, QD
     Route: 065

REACTIONS (11)
  - Sleep disorder [Unknown]
  - Helicobacter infection [Unknown]
  - Gastric ulcer [Unknown]
  - Dyspepsia [Unknown]
  - Musculoskeletal chest pain [Unknown]
  - Abdominal pain upper [Unknown]
  - Drug interaction [Unknown]
  - Gait disturbance [Unknown]
  - Burning sensation [Unknown]
  - Gastritis [Unknown]
  - Arthralgia [Unknown]

NARRATIVE: CASE EVENT DATE: 2015
